FAERS Safety Report 20736238 (Version 2)
Quarter: 2022Q4

REPORT INFORMATION
  Report Type: Spontaneous
  Country: US (occurrence: US)
  Receive Date: 20220421
  Receipt Date: 20221222
  Transmission Date: 20230113
  Serious: No
  Sender: FDA-Public Use
  Company Number: US-PFIZER INC-202101877876

PATIENT
  Age: 61 Year
  Sex: Female
  Weight: 81.65 kg

DRUGS (3)
  1. IBRANCE [Suspect]
     Active Substance: PALBOCICLIB
     Indication: Breast cancer metastatic
     Dosage: 125 MG, CYCLIC [[FINISHED HER FIRST 21 DAYS ON IBRANCE]
  2. IBRANCE [Suspect]
     Active Substance: PALBOCICLIB
     Dosage: 100 MG
  3. LETROZOLE [Concomitant]
     Active Substance: LETROZOLE
     Dosage: UNK

REACTIONS (4)
  - White blood cell count decreased [Unknown]
  - Oropharyngeal pain [Not Recovered/Not Resolved]
  - Neoplasm progression [Unknown]
  - Epistaxis [Unknown]

NARRATIVE: CASE EVENT DATE: 20210101
